FAERS Safety Report 9658007 (Version 2)
Quarter: 2013Q4

REPORT INFORMATION
  Report Type: Spontaneous
  Country: CA (occurrence: None)
  Receive Date: 20131029
  Receipt Date: 20131213
  Transmission Date: 20140711
  Serious: Yes (Other)
  Sender: FDA-Public Use
  Company Number: CA-013369

PATIENT
  Age: 54 Year
  Sex: Female

DRUGS (1)
  1. PICO-SALAX (NOT SPECIFIED) [Suspect]
     Indication: COLONOSCOPY
     Dates: start: 20130311

REACTIONS (1)
  - Convulsion [None]
